FAERS Safety Report 5107667-3 (Version None)
Quarter: 2006Q3

REPORT INFORMATION
  Report Type: 
  Country: None (occurrence: None)
  Receive Date: 20060914
  Receipt Date: 20060901
  Transmission Date: 20061208
  Serious: Yes (Hospitalization)
  Sender: FDA-Public Use
  Company Number: 6025488F

PATIENT
  Age: 55 Year
  Sex: Female

DRUGS (1)
  1. NIASPAN [Suspect]
     Dosage: 750 MG QD PO
     Route: 048
     Dates: start: 20060729, end: 20060731

REACTIONS (1)
  - CEREBROVASCULAR ACCIDENT [None]
